FAERS Safety Report 4498993-X (Version None)
Quarter: 2004Q4

REPORT INFORMATION
  Report Type: 
  Country: None (occurrence: None)
  Receive Date: 20041108
  Receipt Date: 20041026
  Transmission Date: 20050328
  Serious: Yes (Other)
  Sender: FDA-Public Use
  Company Number: 2004234476JP

PATIENT
  Age: 70 Year
  Sex: Female

DRUGS (7)
  1. CABERGOLINE [Suspect]
     Dosage: 4 MG/DAY, ORAL
     Route: 048
  2. MADOPAR (BENSERAZIDE HYDROCHLORIDE) [Concomitant]
  3. ARTANE [Concomitant]
  4. PAXIL [Concomitant]
  5. LORAMET (LORMETAZEPAM) [Concomitant]
  6. DEPAS (ETIZOLAM) [Concomitant]
  7. TIZANIDINE HCL [Concomitant]

REACTIONS (1)
  - PLEURISY [None]
